FAERS Safety Report 12248781 (Version 2)
Quarter: 2016Q2

REPORT INFORMATION
  Report Type: Spontaneous
  Country: JP (occurrence: JP)
  Receive Date: 20160408
  Receipt Date: 20160421
  Transmission Date: 20160815
  Serious: Yes (Death, Hospitalization, Disabling)
  Sender: FDA-Public Use
  Company Number: JP-OTSUKA-2016_007302AA

PATIENT
  Age: 9 Decade
  Sex: Male

DRUGS (2)
  1. SAMSCA [Suspect]
     Active Substance: TOLVAPTAN
     Indication: DYSPNOEA
  2. SAMSCA [Suspect]
     Active Substance: TOLVAPTAN
     Indication: OEDEMA DUE TO CARDIAC DISEASE
     Dosage: 15 MG, DAILY DOSE
     Route: 048
     Dates: start: 20160328, end: 20160328

REACTIONS (1)
  - Hypernatraemia [Fatal]

NARRATIVE: CASE EVENT DATE: 20160328
